FAERS Safety Report 6231811-8 (Version None)
Quarter: 2009Q2

REPORT INFORMATION
  Report Type: 
  Country: None (occurrence: None)
  Receive Date: 20090612
  Receipt Date: 20090612
  Transmission Date: 20091009
  Serious: Yes (Disabling)
  Sender: FDA-Public Use
  Company Number: None

PATIENT
  Age: 49 Year
  Sex: Male
  Weight: 76 kg

DRUGS (1)
  1. INTERFERON PEGFERON [Suspect]

REACTIONS (1)
  - HYPERTHYROIDISM [None]
